FAERS Safety Report 7084007-4 (Version None)
Quarter: 2010Q4

REPORT INFORMATION
  Report Type: 
  Country: None (occurrence: None)
  Receive Date: 20101025
  Receipt Date: 20101013
  Transmission Date: 20110411
  Serious: Yes (Other)
  Sender: FDA-Public Use
  Company Number: 2010AT000041

PATIENT
  Age: 17 Year
  Sex: Female

DRUGS (3)
  1. THEOPHYLLINE [Suspect]
     Indication: ASTHMA
     Dosage: 5 MG/KG/20MIN;1X;IV ; 15 MG/KG/24HRS;QD;IV
     Route: 042
  2. SALBUTAMOL [Concomitant]
  3. PREV MEDS [Concomitant]

REACTIONS (2)
  - LACTIC ACIDOSIS [None]
  - METABOLIC ACIDOSIS [None]
